FAERS Safety Report 7318963-3 (Version None)
Quarter: 2011Q1

REPORT INFORMATION
  Report Type: 
  Country: None (occurrence: None)
  Receive Date: 20110228
  Receipt Date: 20110215
  Transmission Date: 20110831
  Serious: Yes (Hospitalization, Other)
  Sender: FDA-Public Use
  Company Number: US-ELI_LILLY_AND_COMPANY-US201007005276

PATIENT
  Sex: Female

DRUGS (9)
  1. CYMBALTA [Suspect]
     Indication: DEPRESSION
     Dosage: 60 MG, DAILY (1/D)
  2. CYMBALTA [Suspect]
     Dosage: 60 MG, DAILY (1/D)
     Dates: start: 20100201
  3. CYMBALTA [Suspect]
     Dosage: 30 MG, QOD
  4. CYMBALTA [Suspect]
     Dosage: UNK, UNKNOWN
  5. CYMBALTA [Suspect]
     Dosage: 30 MG, DAILY (1/D)
  6. CYMBALTA [Suspect]
     Dosage: 30 MG, DAILY (1/D)
     Dates: start: 20090901, end: 20100201
  7. STEROID ANTIBACTERIALS [Concomitant]
  8. OTHER ANALGESICS AND ANTIPYRETICS [Concomitant]
  9. LORTAB [Concomitant]

REACTIONS (20)
  - NERVE INJURY [None]
  - DRUG WITHDRAWAL SYNDROME [None]
  - COORDINATION ABNORMAL [None]
  - STRESS [None]
  - ANGER [None]
  - DISTURBANCE IN ATTENTION [None]
  - INSOMNIA [None]
  - BLOOD PRESSURE FLUCTUATION [None]
  - DIZZINESS [None]
  - SURGERY [None]
  - OPERATIVE HAEMORRHAGE [None]
  - CONTUSION [None]
  - HYPERTENSION [None]
  - HEADACHE [None]
  - CONFUSIONAL STATE [None]
  - SENSATION OF PRESSURE [None]
  - FEELING ABNORMAL [None]
  - INTENTIONAL DRUG MISUSE [None]
  - DRUG INEFFECTIVE [None]
  - HEART RATE INCREASED [None]
